FAERS Safety Report 8312193-4 (Version None)
Quarter: 2012Q2

REPORT INFORMATION
  Report Type: 
  Country: None (occurrence: None)
  Receive Date: 20120425
  Receipt Date: 20120418
  Transmission Date: 20120825
  Serious: Yes (Hospitalization)
  Sender: FDA-Public Use
  Company Number: ID-ASTRAZENECA-2012SE24679

PATIENT
  Sex: Male

DRUGS (2)
  1. CLOZARIL [Concomitant]
  2. SEROQUEL XR [Suspect]
     Dosage: 8 BLISTER SEROQUEL XR 400 MG (TOTAL DOSE: 8000 MG)
     Route: 048
     Dates: start: 20120415, end: 20120416

REACTIONS (2)
  - OVERDOSE [None]
  - DEPRESSED LEVEL OF CONSCIOUSNESS [None]
